FAERS Safety Report 18286439 (Version 2)
Quarter: 2021Q2

REPORT INFORMATION
  Report Type: Spontaneous
  Country: US (occurrence: US)
  Receive Date: 20200920
  Receipt Date: 20210614
  Transmission Date: 20210717
  Serious: No
  Sender: FDA-Public Use
  Company Number: US-SA-2020SA255755

PATIENT
  Age: 66 Year
  Sex: Male
  Weight: 96.15 kg

DRUGS (1)
  1. DUPIXENT [Suspect]
     Active Substance: DUPILUMAB
     Indication: DERMATITIS ATOPIC
     Dosage: 300 MG, QOW
     Route: 058
     Dates: start: 20200812

REACTIONS (11)
  - Eye discharge [Unknown]
  - Rash [Unknown]
  - Skin discolouration [Unknown]
  - Pruritus [Unknown]
  - Dry skin [Unknown]
  - Dermatitis atopic [Unknown]
  - Skin exfoliation [Unknown]
  - Drug ineffective [Unknown]
  - Skin fissures [Unknown]
  - Condition aggravated [Unknown]
  - Sleep disorder [Unknown]

NARRATIVE: CASE EVENT DATE: 2020
